FAERS Safety Report 16838544 (Version 2)
Quarter: 2019Q4

REPORT INFORMATION
  Report Type: Report from Study
  Country: CO (occurrence: CO)
  Receive Date: 20190923
  Receipt Date: 20191224
  Transmission Date: 20200122
  Serious: Yes (Hospitalization)
  Sender: FDA-Public Use
  Company Number: CO-ASTELLAS-2019US037258

PATIENT
  Age: 72 Year
  Sex: Male

DRUGS (1)
  1. ENZALUTAMIDE [Suspect]
     Active Substance: ENZALUTAMIDE
     Indication: HORMONE-REFRACTORY PROSTATE CANCER
     Route: 048
     Dates: start: 20190323, end: 20191217

REACTIONS (7)
  - Fatigue [Not Recovered/Not Resolved]
  - Pain in extremity [Recovering/Resolving]
  - Bone pain [Not Recovered/Not Resolved]
  - Dyspnoea [Recovering/Resolving]
  - Vomiting [Not Recovered/Not Resolved]
  - Chest pain [Recovering/Resolving]
  - Malaise [Not Recovered/Not Resolved]

NARRATIVE: CASE EVENT DATE: 20190915
